FAERS Safety Report 4448629-9 (Version None)
Quarter: 2004Q3

REPORT INFORMATION
  Report Type: 
  Country: None (occurrence: None)
  Receive Date: 20040730
  Receipt Date: 20031125
  Transmission Date: 20050211
  Serious: Yes (Hospitalization)
  Sender: FDA-Public Use
  Company Number: 2003-11-2153

PATIENT
  Age: 67 Year
  Sex: Male
  Weight: 72.5755 kg

DRUGS (11)
  1. INTRON A [Suspect]
     Indication: MULTIPLE MYELOMA
     Dosage: 2 MU TIW SUBCUTANEOUS
     Route: 058
     Dates: start: 19990101, end: 20031117
  2. LIPITOR [Concomitant]
  3. ECOTRIN [Concomitant]
  4. TOPROL-XL [Concomitant]
  5. HYDROCHLOROTHIAZIDE [Concomitant]
  6. ALTACE [Concomitant]
  7. NEXIUM [Concomitant]
  8. ACYCLOVIR [Concomitant]
  9. THALIDOMIDE [Concomitant]
  10. FLOMAX [Concomitant]
  11. BACTRIM DS [Concomitant]

REACTIONS (1)
  - PNEUMONIA [None]
